FAERS Safety Report 7772262-4 (Version None)
Quarter: 2011Q3

REPORT INFORMATION
  Report Type: 
  Country: None (occurrence: None)
  Receive Date: 20110922
  Receipt Date: 20110426
  Transmission Date: 20111222
  Serious: No
  Sender: FDA-Public Use
  Company Number: US-ASTRAZENECA-2011SE25093

PATIENT
  Age: 31 Year
  Sex: Female

DRUGS (1)
  1. SEROQUEL [Suspect]
     Route: 048
     Dates: start: 20100801

REACTIONS (5)
  - FEELING ABNORMAL [None]
  - DYSPNOEA [None]
  - DIZZINESS [None]
  - OEDEMA PERIPHERAL [None]
  - ARTHRALGIA [None]
